FAERS Safety Report 4282495-X (Version None)
Quarter: 2004Q1

REPORT INFORMATION
  Report Type: 
  Country: None (occurrence: None)
  Receive Date: 20040129
  Receipt Date: 20040116
  Transmission Date: 20041129
  Serious: Yes (Hospitalization, Other)
  Sender: FDA-Public Use
  Company Number: 2003120051

PATIENT
  Age: 74 Year
  Sex: Male
  Weight: 158.759 kg

DRUGS (8)
  1. NEURONTIN [Suspect]
     Indication: NEUROPATHY PERIPHERAL
     Dosage: 900 MG, TID, ORAL
     Route: 048
     Dates: start: 20030910, end: 20030101
  2. ROSIGLITAZONE MALEATE [Suspect]
     Indication: DIABETES MELLITUS
  3. ALBYL MED KODEIN (ACETYLSALICYLIC ACID, CODEINE PHOSPHATE) [Suspect]
  4. OXYCOCET (PARACETAMOL, OXYCODONE HYDROCHLORIDE) [Concomitant]
  5. DESLORATADINE [Concomitant]
  6. PROCHLORPERAZINE [Concomitant]
  7. CETIRIZINE HYDROCHLORIDE [Concomitant]
  8. DRUG, UNSPECIFIED [Concomitant]

REACTIONS (5)
  - DIARRHOEA [None]
  - FATIGUE [None]
  - FEELING ABNORMAL [None]
  - INFLUENZA LIKE ILLNESS [None]
  - NAUSEA [None]
